FAERS Safety Report 24063057 (Version 5)
Quarter: 2025Q1

REPORT INFORMATION
  Report Type: Spontaneous
  Country: JP (occurrence: JP)
  Receive Date: 20240709
  Receipt Date: 20250101
  Transmission Date: 20250408
  Serious: Yes (Other)
  Sender: MERCK
  Company Number: JP-MSD-M2024-13754

PATIENT
  Age: 51 Year
  Sex: Female

DRUGS (8)
  1. KEYTRUDA [Suspect]
     Active Substance: PEMBROLIZUMAB
     Indication: Triple negative breast cancer
     Dosage: 200 MILLIGRAM, Q3W
     Route: 041
     Dates: start: 20230707, end: 20230929
  2. KEYTRUDA [Suspect]
     Active Substance: PEMBROLIZUMAB
     Indication: BRCA1 gene mutation
  3. DOCETAXEL [Suspect]
     Active Substance: DOCETAXEL
     Indication: Triple negative breast cancer
     Route: 065
     Dates: start: 20230707
  4. DOCETAXEL [Suspect]
     Active Substance: DOCETAXEL
     Indication: BRCA1 gene mutation
  5. PACLITAXEL [Concomitant]
     Active Substance: PACLITAXEL
     Indication: Triple negative breast cancer
     Route: 041
     Dates: start: 2023, end: 20230929
  6. PACLITAXEL [Concomitant]
     Active Substance: PACLITAXEL
     Indication: BRCA1 gene mutation
  7. CARBOPLATIN [Concomitant]
     Active Substance: CARBOPLATIN
     Indication: Triple negative breast cancer
     Route: 041
     Dates: start: 2023, end: 20230929
  8. CARBOPLATIN [Concomitant]
     Active Substance: CARBOPLATIN
     Indication: BRCA1 gene mutation

REACTIONS (3)
  - Hypothalamo-pituitary disorder [Recovering/Resolving]
  - Immune-mediated hypothyroidism [Recovered/Resolved]
  - Immune-mediated adrenal insufficiency [Recovering/Resolving]

NARRATIVE: CASE EVENT DATE: 20230101
